FAERS Safety Report 10678690 (Version 1)
Quarter: 2014Q4

REPORT INFORMATION
  Report Type: Spontaneous
  Country: GB (occurrence: GB)
  Receive Date: 20141229
  Receipt Date: 20141229
  Transmission Date: 20150529
  Serious: Yes (Life-Threatening)
  Sender: FDA-Public Use
  Company Number: GB-JNJFOC-20141212442

PATIENT
  Age: 68 Year
  Sex: Female
  Weight: 103 kg

DRUGS (9)
  1. BUMETANIDE. [Concomitant]
     Active Substance: BUMETANIDE
     Route: 065
  2. XARELTO [Suspect]
     Active Substance: RIVAROXABAN
     Indication: CEREBROVASCULAR ACCIDENT PROPHYLAXIS
     Route: 048
     Dates: start: 20140728, end: 20141023
  3. IRBESARTAN. [Concomitant]
     Active Substance: IRBESARTAN
     Route: 065
  4. AMITRIPTYLINE [Concomitant]
     Active Substance: AMITRIPTYLINE
     Route: 065
  5. SPIRONOLACTONE. [Concomitant]
     Active Substance: SPIRONOLACTONE
     Route: 065
  6. XARELTO [Suspect]
     Active Substance: RIVAROXABAN
     Indication: ATRIAL FIBRILLATION
     Route: 048
     Dates: start: 20140728, end: 20141023
  7. INSULIN HUMAN [Concomitant]
     Active Substance: INSULIN HUMAN
  8. CHLORPHENAMINE [Concomitant]
     Active Substance: CHLORPHENIRAMINE MALEATE
     Route: 065
  9. GTN [Concomitant]
     Active Substance: NITROGLYCERIN
     Route: 065

REACTIONS (2)
  - Gastrointestinal haemorrhage [Recovered/Resolved]
  - Faeces discoloured [Recovered/Resolved]

NARRATIVE: CASE EVENT DATE: 20140728
